FAERS Safety Report 8315085-X (Version None)
Quarter: 2012Q2

REPORT INFORMATION
  Report Type: 
  Country: None (occurrence: None)
  Receive Date: 20120426
  Receipt Date: 20120419
  Transmission Date: 20120825
  Serious: Yes (Hospitalization)
  Sender: FDA-Public Use
  Company Number: GB-ABBOTT-12P-167-0920866-00

PATIENT
  Sex: Male

DRUGS (3)
  1. PARACETAMOL [Concomitant]
     Indication: PRODUCT USED FOR UNKNOWN INDICATION
  2. CLARITHROMYCIN [Suspect]
     Indication: TONSILLITIS
  3. CLARITHROMYCIN [Suspect]
     Indication: RESPIRATORY DISORDER
     Route: 048
     Dates: start: 20120301, end: 20120307

REACTIONS (2)
  - EYE MOVEMENT DISORDER [None]
  - NYSTAGMUS [None]
